FAERS Safety Report 8813878 (Version 1)
Quarter: 2012Q4

REPORT INFORMATION
  Report Type: 
  Country: US (occurrence: US)
  Receive Date: 20120928
  Receipt Date: 20120928
  Transmission Date: 20130627
  Serious: No
  Sender: FDA-Public Use
  Company Number: US-BIOGENIDEC-2012BI040472

PATIENT
  Sex: Female

DRUGS (1)
  1. AVONEX [Suspect]
     Indication: MULTIPLE SCLEROSIS
     Route: 030

REACTIONS (5)
  - Optic neuritis [Unknown]
  - VIIth nerve paralysis [Recovered/Resolved]
  - Trismus [Recovered/Resolved]
  - Eye movement disorder [Unknown]
  - Multiple sclerosis relapse [Unknown]
